FAERS Safety Report 21082506 (Version 1)
Quarter: 2022Q3

REPORT INFORMATION
  Report Type: Spontaneous
  Country: FR (occurrence: FR)
  Receive Date: 20220714
  Receipt Date: 20220714
  Transmission Date: 20221026
  Serious: Yes (Other)
  Sender: FDA-Public Use
  Company Number: None

PATIENT
  Age: 41 Year
  Sex: Male

DRUGS (2)
  1. SILDENAFIL CITRATE [Suspect]
     Active Substance: SILDENAFIL CITRATE
     Dosage: 2 X 50 MG PER SESSION
  2. BUTYROLACTONE [Suspect]
     Active Substance: BUTYROLACTONE
     Dosage: UNK

REACTIONS (1)
  - Drug dependence [Not Recovered/Not Resolved]
